FAERS Safety Report 11522384 (Version 2)
Quarter: 2015Q3

REPORT INFORMATION
  Report Type: Other
  Country: IT (occurrence: IT)
  Receive Date: 20150918
  Receipt Date: 20150927
  Transmission Date: 20151125
  Serious: Yes (Hospitalization, Disabling)
  Sender: FDA-Public Use
  Company Number: IT-MYLANLABS-2015M1031510

PATIENT

DRUGS (1)
  1. CLOPIDOGREL [Suspect]
     Active Substance: CLOPIDOGREL BISULFATE
     Indication: HYPOXIC-ISCHAEMIC ENCEPHALOPATHY
     Dosage: 1 DF, QD
     Route: 048
     Dates: start: 20150801, end: 20150901

REACTIONS (3)
  - Product substitution issue [Unknown]
  - Ischaemic stroke [Unknown]
  - No therapeutic response [Unknown]

NARRATIVE: CASE EVENT DATE: 20150901
